FAERS Safety Report 6846510 (Version 6)
Quarter: 2012Q4

REPORT INFORMATION
  Report Type: 
  Country: JP (occurrence: JP)
  Receive Date: 20081212
  Receipt Date: 20121123
  Transmission Date: 20130627
  Serious: Yes (Other)
  Sender: FDA-Public Use
  Company Number: JP-PFIZER INC-2008151631

PATIENT
  Age: 55 Year
  Sex: Female

DRUGS (9)
  1. RIFABUTIN [Suspect]
     Indication: MYCOBACTERIUM AVIUM COMPLEX INFECTION
     Dosage: 300 mg, 1x/day
     Dates: start: 20081026, end: 20081101
  2. RIFABUTIN [Suspect]
     Dosage: 150 mg, 1x/day
     Dates: start: 20081121, end: 20081122
  3. CLARITH [Concomitant]
     Indication: MYCOBACTERIUM AVIUM COMPLEX INFECTION
     Dosage: 600 mg, 3x/day
     Route: 048
     Dates: start: 20060908
  4. ESANBUTOL [Concomitant]
     Indication: MYCOBACTERIUM AVIUM COMPLEX INFECTION
     Dosage: 500 mg, 1x/day
     Route: 048
     Dates: start: 20060908
  5. MUCOSOLVAN [Concomitant]
     Dosage: 15 mg, 3x/day
     Route: 048
     Dates: start: 20020813
  6. MUCODYNE [Concomitant]
     Dosage: 500 mg, 3x/day
     Route: 048
     Dates: start: 20070927
  7. FERROMIA [Concomitant]
     Dosage: 50 mg, 1x/day
     Route: 048
     Dates: start: 20020910
  8. SELBEX [Concomitant]
     Dosage: 50 mg, 3x/day
     Route: 048
  9. MAGNESIUM OXIDE [Concomitant]
     Dosage: 500 mg, 2x/day
     Route: 048

REACTIONS (5)
  - Diarrhoea [Recovered/Resolved]
  - Loss of consciousness [Recovered/Resolved]
  - Tremor [Recovered/Resolved]
  - Decreased appetite [Recovered/Resolved]
  - Chills [Recovered/Resolved]
